FAERS Safety Report 5132748-8 (Version None)
Quarter: 2006Q4

REPORT INFORMATION
  Report Type: 
  Country: None (occurrence: None)
  Receive Date: 20061017
  Receipt Date: 20061003
  Transmission Date: 20070319
  Serious: Yes (Hospitalization)
  Sender: FDA-Public Use
  Company Number: 2006-08-0388

PATIENT
  Sex: Male
  Weight: 69 kg

DRUGS (6)
  1. TEMODAL [Suspect]
     Indication: BRAIN NEOPLASM
     Dosage: 105 MG; QD; PO
     Route: 048
     Dates: start: 20060707
  2. WARFARIN SODIUM [Concomitant]
  3. ATIVAN [Concomitant]
  4. DECADRON [Concomitant]
  5. KEPPRA [Concomitant]
  6. .. [Concomitant]

REACTIONS (6)
  - DISEASE PROGRESSION [None]
  - DYSPHASIA [None]
  - DYSTROPHIC CALCIFICATION [None]
  - GENERAL PHYSICAL HEALTH DETERIORATION [None]
  - GRAND MAL CONVULSION [None]
  - NEOPLASM PROGRESSION [None]
